FAERS Safety Report 8621945-2 (Version None)
Quarter: 2012Q3

REPORT INFORMATION
  Report Type: 
  Country: None (occurrence: None)
  Receive Date: 20120822
  Receipt Date: 20120822
  Transmission Date: 20120928
  Serious: No
  Sender: FDA-Public Use
  Company Number: None

PATIENT
  Sex: Female
  Weight: 65.318 kg

DRUGS (2)
  1. CELEBREX [Suspect]
     Dosage: 200MG PO QD
     Route: 048
     Dates: start: 20110705
  2. ALLOPURINOL TAB [Suspect]
     Dosage: 10MMG PO QD
     Route: 048
     Dates: start: 20110705, end: 20110917

REACTIONS (2)
  - ORAL LICHEN PLANUS [None]
  - SKIN HYPERPIGMENTATION [None]
